FAERS Safety Report 10266005 (Version 1)
Quarter: 2014Q2

REPORT INFORMATION
  Report Type: Spontaneous
  Country: FR (occurrence: FR)
  Receive Date: 20140627
  Receipt Date: 20140627
  Transmission Date: 20141212
  Serious: Yes (Hospitalization)
  Sender: FDA-Public Use
  Company Number: FR-ASTRAZENECA-2014SE45598

PATIENT
  Age: 82 Year
  Sex: Female

DRUGS (6)
  1. HYTACAND [Suspect]
     Dosage: 8/12.5 MG
     Route: 048
     Dates: start: 200412, end: 20140311
  2. HYTACAND [Suspect]
     Dosage: 16 MG DAILY
     Route: 048
     Dates: start: 20140321
  3. DAFALGAN [Suspect]
     Route: 048
  4. DIFFU K [Suspect]
     Route: 048
     Dates: start: 201309
  5. KARDEGIC [Suspect]
     Route: 048
     Dates: start: 2000
  6. LERCAN [Suspect]
     Route: 048

REACTIONS (3)
  - Fall [Recovered/Resolved]
  - Hypokalaemia [Recovered/Resolved]
  - Hyponatraemia [Recovered/Resolved]
